FAERS Safety Report 18177492 (Version 1)
Quarter: 2020Q3

REPORT INFORMATION
  Report Type: Spontaneous
  Country: DE (occurrence: DE)
  Receive Date: 20200821
  Receipt Date: 20200821
  Transmission Date: 20201103
  Serious: Yes (Hospitalization)
  Sender: FDA-Public Use
  Company Number: DE-TEVA-2020-DE-1815664

PATIENT
  Age: 63 Year
  Sex: Male
  Weight: 70 kg

DRUGS (5)
  1. SPIRONOLACTON [Suspect]
     Active Substance: SPIRONOLACTONE
     Dosage: 100 MILLIGRAM DAILY; 1?0?0?0
  2. BETABION 100MG [Concomitant]
     Dosage: 2 DOSAGE FORMS DAILY; 100 MG, 2?0?0?0
  3. TORASEMID [Concomitant]
     Active Substance: TORSEMIDE
     Dosage: 1?0.5?0?0
  4. PROPANOL [Concomitant]
     Active Substance: PROPRANOLOL HYDROCHLORIDE
     Dosage: 1 DOSAGE FORMS DAILY; 40 MG, 0.5?0?0.5?0
  5. RIFAXIMIN DR [Suspect]
     Active Substance: RIFAXIMIN
     Dosage: 1100 MILLIGRAM DAILY; 1?0?1?0

REACTIONS (3)
  - General physical health deterioration [Recovering/Resolving]
  - Confusional state [Recovering/Resolving]
  - Condition aggravated [Recovering/Resolving]
